FAERS Safety Report 15611341 (Version 1)
Quarter: 2018Q4

REPORT INFORMATION
  Report Type: Spontaneous
  Country: US (occurrence: US)
  Receive Date: 20181107
  Receipt Date: 20181107
  Transmission Date: 20190205
  Serious: Yes (Hospitalization)
  Sender: FDA-Public Use
  Company Number: None

PATIENT
  Age: 65 Year
  Sex: Female

DRUGS (19)
  1. KETOCONAZOLE. [Concomitant]
     Active Substance: KETOCONAZOLE
  2. PRILOSEC [Concomitant]
     Active Substance: OMEPRAZOLE MAGNESIUM
  3. ZOLOFT [Concomitant]
     Active Substance: SERTRALINE HYDROCHLORIDE
  4. CRESTOR [Concomitant]
     Active Substance: ROSUVASTATIN CALCIUM
  5. FOLIC ACID. [Concomitant]
     Active Substance: FOLIC ACID
  6. KEPPRA [Concomitant]
     Active Substance: LEVETIRACETAM
  7. ROPINIROLE. [Concomitant]
     Active Substance: ROPINIROLE
  8. HCTZ [Concomitant]
     Active Substance: HYDROCHLOROTHIAZIDE
  9. NOVOLOG [Concomitant]
     Active Substance: INSULIN ASPART
  10. SOD BICARB INJ [Concomitant]
  11. METOPROLOL TARTRATE. [Concomitant]
     Active Substance: METOPROLOL TARTRATE
  12. ITRACONAZOLE. [Concomitant]
     Active Substance: ITRACONAZOLE
  13. TOUJEB SOLO [Concomitant]
  14. STELARA [Suspect]
     Active Substance: USTEKINUMAB
     Indication: PSORIASIS
     Dosage: ?          OTHER FREQUENCY:Q12W;?
     Route: 058
     Dates: start: 20170920
  15. ASPIRIN. [Concomitant]
     Active Substance: ASPIRIN
  16. FEXOFENADINE [Concomitant]
     Active Substance: FEXOFENADINE\FEXOFENADINE HYDROCHLORIDE
  17. MOMETASONE OINT [Concomitant]
  18. SYNTHROID [Concomitant]
     Active Substance: LEVOTHYROXINE SODIUM
  19. VITAMIN D3 [Concomitant]
     Active Substance: CHOLECALCIFEROL

REACTIONS (6)
  - Herpes zoster [None]
  - Cerebral haemorrhage [None]
  - Lip dry [None]
  - Fall [None]
  - Chapped lips [None]
  - Hallucination [None]

NARRATIVE: CASE EVENT DATE: 201810
